FAERS Safety Report 6871372-3 (Version None)
Quarter: 2010Q3

REPORT INFORMATION
  Report Type: 
  Country: None (occurrence: None)
  Receive Date: 20100723
  Receipt Date: 20100712
  Transmission Date: 20110219
  Serious: Yes (Hospitalization, Other)
  Sender: FDA-Public Use
  Company Number: US-PFIZER INC-2009299305

PATIENT
  Sex: Female

DRUGS (7)
  1. CHANTIX [Suspect]
     Indication: SMOKING CESSATION THERAPY
     Dosage: 0.5MG/1MG
     Route: 048
     Dates: start: 20070903, end: 20071201
  2. ALBUTEROL [Concomitant]
     Indication: ASTHMA
     Dosage: UNK
     Dates: start: 20030101
  3. ACCOLATE [Concomitant]
     Indication: ASTHMA
     Dosage: UNK
     Dates: start: 20030101
  4. EFFEXOR [Concomitant]
     Indication: DEPRESSION
     Dosage: UNK
     Dates: start: 20040101
  5. IMITREX [Concomitant]
     Indication: MIGRAINE
     Dosage: UNK
     Dates: start: 20050101
  6. FLUOCINONIDE [Concomitant]
     Indication: RASH
     Dosage: UNK
     Dates: start: 20070101
  7. SALBUTAMOL SULFATE [Concomitant]
     Indication: ASTHMA
     Dosage: UNK
     Dates: start: 20060101

REACTIONS (6)
  - ABNORMAL BEHAVIOUR [None]
  - ANXIETY [None]
  - DEPRESSION [None]
  - FEAR [None]
  - INTENTIONAL OVERDOSE [None]
  - SUICIDE ATTEMPT [None]
